FAERS Safety Report 25607462 (Version 3)
Quarter: 2025Q4

REPORT INFORMATION
  Report Type: Spontaneous
  Country: US (occurrence: US)
  Receive Date: 20250725
  Receipt Date: 20251017
  Transmission Date: 20260117
  Serious: Yes (Hospitalization, Other)
  Sender: BIOVITRUM
  Company Number: US-BIOVITRUM-2025-US-010206

PATIENT
  Age: 83 Year
  Sex: Male

DRUGS (2)
  1. VONJO [Suspect]
     Active Substance: PACRITINIB
     Indication: Myelofibrosis
     Dosage: DAILY (BUT ONLY TOOK IT TWO DAYS)
     Route: 048
     Dates: start: 20250704
  2. VONJO [Suspect]
     Active Substance: PACRITINIB
     Dosage: STARTED IT UP YESTERDAY
     Route: 048

REACTIONS (9)
  - Cardiac failure [Unknown]
  - Pulmonary oedema [Unknown]
  - Intentional product misuse [Not Recovered/Not Resolved]
  - Haemorrhage intracranial [Unknown]
  - Product dose omission issue [Unknown]
  - Fall [Unknown]
  - Hand fracture [Unknown]
  - Eye contusion [Unknown]
  - Red blood cell count decreased [Unknown]

NARRATIVE: CASE EVENT DATE: 20250704
